FAERS Safety Report 21183422 (Version 3)
Quarter: 2022Q4

REPORT INFORMATION
  Report Type: Spontaneous
  Country: AU (occurrence: AU)
  Receive Date: 20220808
  Receipt Date: 20221014
  Transmission Date: 20230112
  Serious: Yes (Life-Threatening, Other)
  Sender: FDA-Public Use
  Company Number: AU-JNJFOC-20220808969

PATIENT
  Age: 47 Year
  Sex: Male
  Weight: 88 kg

DRUGS (5)
  1. TREMFYA [Suspect]
     Active Substance: GUSELKUMAB
     Indication: Psoriasis
     Route: 065
     Dates: start: 20190401, end: 202205
  2. TREMFYA [Suspect]
     Active Substance: GUSELKUMAB
  3. TREMFYA [Suspect]
     Active Substance: GUSELKUMAB
  4. XAMIOL [BETAMETHASONE DIPROPIONATE;CALCIPOTRIOL MONOHYDRATE] [Concomitant]
     Route: 065
     Dates: start: 202101
  5. METHOTREXATE [Concomitant]
     Active Substance: METHOTREXATE
     Route: 065

REACTIONS (1)
  - B-cell lymphoma [Not Recovered/Not Resolved]

NARRATIVE: CASE EVENT DATE: 20220522
